FAERS Safety Report 15042178 (Version 1)
Quarter: 2018Q2

REPORT INFORMATION
  Report Type: Spontaneous
  Country: US (occurrence: US)
  Receive Date: 20180621
  Receipt Date: 20180621
  Transmission Date: 20180711
  Serious: No
  Sender: FDA-Public Use
  Company Number: US-PFIZER INC-2018252639

PATIENT
  Sex: Male

DRUGS (1)
  1. DAPTOMYCIN. [Suspect]
     Active Substance: DAPTOMYCIN
     Dosage: 605 MG, ALTERNATE DAY (Q 48 H)
     Route: 042
     Dates: start: 20180609

REACTIONS (3)
  - Asthenia [Unknown]
  - Feeling cold [Unknown]
  - Tremor [Unknown]

NARRATIVE: CASE EVENT DATE: 20180609
